FAERS Safety Report 7128505-3 (Version None)
Quarter: 2010Q4

REPORT INFORMATION
  Report Type: 
  Country: None (occurrence: None)
  Receive Date: 20101130
  Receipt Date: 20101124
  Transmission Date: 20110411
  Serious: Yes (Death, Hospitalization)
  Sender: FDA-Public Use
  Company Number: US-ACTELION-A-US2010-41836

PATIENT

DRUGS (3)
  1. VELETRI [Suspect]
     Indication: PULMONARY ARTERIAL HYPERTENSION
     Dosage: 24 NG/KG, PER MIN
     Route: 041
     Dates: start: 20100901, end: 20101113
  2. TRACLEER [Suspect]
     Indication: PULMONARY ARTERIAL HYPERTENSION
     Route: 048
  3. REVATIO [Concomitant]

REACTIONS (2)
  - CONDITION AGGRAVATED [None]
  - PULMONARY ARTERIAL HYPERTENSION [None]
